FAERS Safety Report 12633433 (Version 1)
Quarter: 2016Q3

REPORT INFORMATION
  Report Type: Spontaneous
  Country: BR (occurrence: BR)
  Receive Date: 20160808
  Receipt Date: 20160808
  Transmission Date: 20161109
  Serious: Yes (Hospitalization)
  Sender: FDA-Public Use
  Company Number: PHHY2016BR107807

PATIENT
  Age: 23 Year
  Sex: Female
  Weight: 71.5 kg

DRUGS (3)
  1. TIMOGLOBULINA [Concomitant]
     Indication: PRODUCT USED FOR UNKNOWN INDICATION
     Dosage: 4.5 MG, (3MG + 1.5MG)
     Route: 065
  2. CERTICAN [Suspect]
     Active Substance: EVEROLIMUS
     Indication: RENAL TRANSPLANT
     Dosage: 3 MG, QD (2 DF OF 1MG AND 2 DF OF 0.5 MG, QD)
     Route: 048
     Dates: start: 20160724, end: 20160728
  3. TACROLIMUS. [Suspect]
     Active Substance: TACROLIMUS
     Indication: RENAL TRANSPLANT
     Dosage: 7 MG (4MG IN THE MORNING AND 3 MG AT NIGHT, AFTER 12HRS)
     Route: 065

REACTIONS (2)
  - Submaxillary gland enlargement [Recovering/Resolving]
  - Off label use [Unknown]

NARRATIVE: CASE EVENT DATE: 20160724
